FAERS Safety Report 10302278 (Version 1)
Quarter: 2014Q3

REPORT INFORMATION
  Report Type: Spontaneous
  Country: US (occurrence: US)
  Receive Date: 20140714
  Receipt Date: 20140714
  Transmission Date: 20150326
  Serious: No
  Sender: FDA-Public Use
  Company Number: US-BAUSCH-BL-2013-005652

PATIENT
  Age: 81 Year
  Sex: Male

DRUGS (4)
  1. ILEVRO [Concomitant]
     Active Substance: NEPAFENAC
  2. DUREZOL [Concomitant]
     Active Substance: DIFLUPREDNATE
  3. BESIVANCE [Suspect]
     Active Substance: BESIFLOXACIN
     Indication: CATARACT OPERATION
  4. BESIVANCE [Suspect]
     Active Substance: BESIFLOXACIN
     Indication: PREOPERATIVE CARE
     Dosage: 1 DROP IN RIGHT EYE, TWO TIMES
     Route: 047
     Dates: start: 20131021, end: 20131021

REACTIONS (2)
  - Swelling face [Recovered/Resolved]
  - Off label use [Recovered/Resolved]

NARRATIVE: CASE EVENT DATE: 20131021
